FAERS Safety Report 7985652 (Version 7)
Quarter: 2012Q4

REPORT INFORMATION
  Report Type: 
  Country: BR (occurrence: BR)
  Receive Date: 20110610
  Receipt Date: 20121019
  Transmission Date: 20130627
  Serious: Yes (Death, Life-Threatening, Hospitalization, Other)
  Sender: FDA-Public Use
  Company Number: BR-BAYER-2011-004648

PATIENT
  Age: 73 Year
  Sex: Male
  Weight: 77 kg

DRUGS (34)
  1. PLACEBO [Suspect]
     Indication: HEPATIC NEOPLASM MALIGNANT
     Dosage: 150 mg, QD
     Route: 048
     Dates: start: 20100914, end: 20100924
  2. PLACEBO [Suspect]
     Indication: HEPATIC NEOPLASM MALIGNANT
     Dosage: 0 UNK, UNK
     Route: 048
     Dates: start: 20100925, end: 20101004
  3. PLACEBO [Suspect]
     Indication: HEPATIC NEOPLASM MALIGNANT
     Dosage: 100 mg, QD
     Route: 048
     Dates: start: 20101005, end: 20101024
  4. PLACEBO [Suspect]
     Indication: HEPATIC NEOPLASM MALIGNANT
     Dosage: 100 mg, QD
     Route: 048
     Dates: start: 20101025, end: 20101115
  5. PLACEBO [Suspect]
     Indication: HEPATIC NEOPLASM MALIGNANT
     Dosage: 100 mg, QD
     Route: 048
     Dates: start: 20101116, end: 20101205
  6. PLACEBO [Suspect]
     Indication: HEPATIC NEOPLASM MALIGNANT
     Dosage: 100 mg, QD
     Route: 048
     Dates: start: 20101206, end: 20101219
  7. PLACEBO [Suspect]
     Indication: HEPATIC NEOPLASM MALIGNANT
     Dosage: 100 mg, QD
     Route: 048
     Dates: start: 20101220, end: 20110116
  8. PLACEBO [Suspect]
     Indication: HEPATIC NEOPLASM MALIGNANT
     Dosage: 100 mg, QD
     Route: 048
     Dates: start: 20110117, end: 20110206
  9. PLACEBO [Suspect]
     Indication: HEPATIC NEOPLASM MALIGNANT
     Dosage: 100 mg, QD
     Route: 048
     Dates: start: 20110207, end: 20110228
  10. PLACEBO [Suspect]
     Indication: HEPATIC NEOPLASM MALIGNANT
     Dosage: 100 mg, QD
     Route: 048
     Dates: start: 20110301, end: 20110309
  11. SORAFENIB (RAF KINASE INHIBITOR) [Suspect]
     Indication: HEPATIC NEOPLASM MALIGNANT
     Dosage: 400 mg, BID
     Route: 048
     Dates: start: 20100914, end: 20100923
  12. SORAFENIB (RAF KINASE INHIBITOR) [Suspect]
     Indication: HEPATIC NEOPLASM MALIGNANT
     Dosage: 400 mg, QD
     Route: 048
     Dates: start: 20100924, end: 20100924
  13. SORAFENIB (RAF KINASE INHIBITOR) [Suspect]
     Indication: HEPATIC NEOPLASM MALIGNANT
     Dosage: 0
     Dates: start: 20100925, end: 20101004
  14. SORAFENIB (RAF KINASE INHIBITOR) [Suspect]
     Indication: HEPATIC NEOPLASM MALIGNANT
     Dosage: 400 mg, BID
     Route: 048
     Dates: start: 20101005, end: 20101010
  15. SORAFENIB (RAF KINASE INHIBITOR) [Suspect]
     Indication: HEPATIC NEOPLASM MALIGNANT
     Dosage: 400 mg, QD
     Route: 048
     Dates: start: 20101011, end: 20101024
  16. SORAFENIB (RAF KINASE INHIBITOR) [Suspect]
     Indication: HEPATIC NEOPLASM MALIGNANT
     Dosage: 400 mg, QD
     Route: 048
     Dates: start: 20101025, end: 20101115
  17. SORAFENIB (RAF KINASE INHIBITOR) [Suspect]
     Indication: HEPATIC NEOPLASM MALIGNANT
     Dosage: 400 mg, QD
     Route: 048
     Dates: start: 20101116, end: 20101205
  18. SORAFENIB (RAF KINASE INHIBITOR) [Suspect]
     Indication: HEPATIC NEOPLASM MALIGNANT
     Dosage: 400 mg, QD
     Route: 048
     Dates: start: 20101206, end: 20101219
  19. SORAFENIB (RAF KINASE INHIBITOR) [Suspect]
     Indication: HEPATIC NEOPLASM MALIGNANT
     Dosage: 400 mg, QD
     Route: 048
     Dates: start: 20101220, end: 20110116
  20. SORAFENIB (RAF KINASE INHIBITOR) [Suspect]
     Indication: HEPATIC NEOPLASM MALIGNANT
     Dosage: 400 mg, QD
     Route: 048
     Dates: start: 20110117, end: 20110206
  21. SORAFENIB (RAF KINASE INHIBITOR) [Suspect]
     Indication: HEPATIC NEOPLASM MALIGNANT
     Dosage: 400 mg, BID
     Route: 048
     Dates: start: 20110207, end: 20110227
  22. SORAFENIB (RAF KINASE INHIBITOR) [Suspect]
     Indication: HEPATIC NEOPLASM MALIGNANT
     Dosage: 400 mg, BID
     Route: 048
     Dates: start: 20110228, end: 20110308
  23. SORAFENIB (RAF KINASE INHIBITOR) [Suspect]
     Indication: HEPATIC NEOPLASM MALIGNANT
     Dosage: 400 mg, QD
     Route: 048
     Dates: start: 20110309, end: 20110309
  24. LUFTAL [Concomitant]
     Indication: ABDOMINAL PAIN UPPER
     Dosage: 125mg - 375 mg PRN
     Dates: start: 20100909
  25. TRAMAL [Concomitant]
     Indication: ABDOMINAL PAIN UPPER
     Dosage: 1 DF, UNK
     Dates: start: 20100908
  26. ULTRAVIST [Concomitant]
     Indication: SCAN WITH CONTRAST
     Dosage: 1.5ml/kg
     Dates: start: 20100908
  27. RELIEV [Concomitant]
     Indication: DIAGNOSTIC PROCEDURE
     Dosage: 14 g, UNK
     Dates: start: 20100908
  28. NORFLOXACIN [Concomitant]
     Indication: HAEMORRHAGE PROPHYLAXIS
     Dosage: 400 mg, UNK
     Dates: start: 20110319
  29. NORFLOXACIN [Concomitant]
     Indication: HAEMORRHAGE PROPHYLAXIS
     Dosage: 400 mg, UNK
     Dates: start: 20110321
  30. NORFLOXACIN [Concomitant]
     Indication: HAEMORRHAGE PROPHYLAXIS
     Dosage: 800 mg, UNK
     Dates: start: 20110322, end: 20110327
  31. NORFLOXACIN [Concomitant]
     Indication: HAEMORRHAGE PROPHYLAXIS
     Dosage: 400 mg, UNK
     Dates: start: 20110325, end: 20110325
  32. NORFLOXACIN [Concomitant]
     Indication: HAEMORRHAGE PROPHYLAXIS
     Dosage: 400 mg, UNK
     Dates: start: 20110328, end: 20110328
  33. PROPOFOL [Concomitant]
     Indication: SEDATIVE THERAPY
     Dosage: 200 mg, UNK
     Dates: start: 20110320, end: 20110320
  34. DIMETICONE [Concomitant]
     Indication: ABDOMINAL PAIN UPPER
     Dosage: 30 drops
     Dates: start: 20110411, end: 20110422

REACTIONS (9)
  - Hepatic failure [Fatal]
  - Pneumonia bacterial [Not Recovered/Not Resolved]
  - Interstitial lung disease [Not Recovered/Not Resolved]
  - Upper gastrointestinal haemorrhage [Recovered/Resolved]
  - Lower gastrointestinal haemorrhage [Recovered/Resolved]
  - Endocarditis [Not Recovered/Not Resolved]
  - Enterobacter infection [Recovered/Resolved]
  - Staphylococcal infection [Not Recovered/Not Resolved]
  - Hepatic encephalopathy [Not Recovered/Not Resolved]
